FAERS Safety Report 8844415 (Version 1)
Quarter: 2012Q4

REPORT INFORMATION
  Report Type: 
  Country: US (occurrence: US)
  Receive Date: 20121017
  Receipt Date: 20121017
  Transmission Date: 20130627
  Serious: No
  Sender: FDA-Public Use
  Company Number: US-PFIZER INC-2012254065

PATIENT
  Age: 75 Year
  Sex: Female
  Weight: 63.5 kg

DRUGS (1)
  1. ESTRING [Suspect]
     Indication: ATROPHIC VULVOVAGINITIS
     Dosage: UNK
     Route: 067
     Dates: start: 20121010

REACTIONS (1)
  - Vulvovaginal pain [Not Recovered/Not Resolved]
